FAERS Safety Report 14892754 (Version 2)
Quarter: 2018Q3

REPORT INFORMATION
  Report Type: Report from Study
  Country: FR (occurrence: FR)
  Receive Date: 20180514
  Receipt Date: 20180706
  Transmission Date: 20181010
  Serious: Yes (Death, Hospitalization, Other)
  Sender: FDA-Public Use
  Company Number: FR-PFIZER INC-2018191760

PATIENT
  Age: 64 Year
  Sex: Male
  Weight: 60 kg

DRUGS (10)
  1. FLUOROURACIL. [Suspect]
     Active Substance: FLUOROURACIL
     Indication: COLORECTAL CANCER METASTATIC
     Dosage: 4000 MG, CYCLIC
     Route: 041
     Dates: start: 20150527, end: 20150527
  2. LEUCOVORIN /00566701/ [Suspect]
     Active Substance: LEUCOVORIN
     Indication: COLORECTAL CANCER METASTATIC
     Dosage: 349.8 MG, DAILY, CYCLIC
     Route: 041
     Dates: start: 20150528, end: 20150528
  3. FLUOROURACIL. [Suspect]
     Active Substance: FLUOROURACIL
     Dosage: 1300 MG, DAILY, CYCLIC
     Route: 040
     Dates: start: 20150611, end: 20150611
  4. LEUCOVORIN /00566701/ [Suspect]
     Active Substance: LEUCOVORIN
     Dosage: 337.6 MG, DAILY, CYCLIC
     Route: 041
     Dates: start: 20150611, end: 20150611
  5. FLUOROURACIL. [Suspect]
     Active Substance: FLUOROURACIL
     Dosage: 1400 MG, DAILY, CYCLIC
     Route: 040
     Dates: start: 20150528, end: 20150528
  6. IRINOTECAN HCL [Suspect]
     Active Substance: IRINOTECAN HYDROCHLORIDE
     Indication: COLORECTAL CANCER METASTATIC
     Dosage: 300 MG, DAILY, CYCLIC
     Route: 041
     Dates: start: 20150527, end: 20150527
  7. AFLIBERCEPT [Suspect]
     Active Substance: AFLIBERCEPT
     Indication: COLORECTAL CANCER METASTATIC
     Dosage: 275 MG, DAILY, CYCLIC
     Route: 041
     Dates: start: 20150527, end: 20150527
  8. IRINOTECAN HCL [Suspect]
     Active Substance: IRINOTECAN HYDROCHLORIDE
     Dosage: 300 MG, DAILY, CYCLIC
     Route: 041
     Dates: start: 20150610, end: 20150610
  9. FLUOROURACIL. [Suspect]
     Active Substance: FLUOROURACIL
     Dosage: 3900 MG, DAILY, CYCLIC
     Route: 041
     Dates: start: 20150610, end: 20150610
  10. AFLIBERCEPT [Suspect]
     Active Substance: AFLIBERCEPT
     Dosage: 250 MG, DAILY, CYCLIC
     Route: 041
     Dates: start: 20150610, end: 20150610

REACTIONS (3)
  - Postoperative wound infection [Recovering/Resolving]
  - Hypertension [Not Recovered/Not Resolved]
  - Septic shock [Fatal]

NARRATIVE: CASE EVENT DATE: 20150615
